FAERS Safety Report 17870358 (Version 1)
Quarter: 2020Q2

REPORT INFORMATION
  Report Type: Spontaneous
  Country: US (occurrence: US)
  Receive Date: 20200608
  Receipt Date: 20200608
  Transmission Date: 20200714
  Serious: No
  Sender: FDA-Public Use
  Company Number: US-GLAXOSMITHKLINE-US2020091012

PATIENT
  Sex: Female

DRUGS (1)
  1. ARNUITY ELLIPTA [Suspect]
     Active Substance: FLUTICASONE FUROATE
     Indication: DYSPNOEA
     Dosage: UNK
     Route: 065
     Dates: start: 202004

REACTIONS (7)
  - Dyspnoea [Unknown]
  - Oropharyngeal pain [Unknown]
  - Asthenia [Unknown]
  - Feeling cold [Unknown]
  - Wrong technique in device usage process [Unknown]
  - Headache [Unknown]
  - Dizziness [Unknown]
